FAERS Safety Report 19718212 (Version 1)
Quarter: 2021Q3

REPORT INFORMATION
  Report Type: Spontaneous
  Country: CA (occurrence: CA)
  Receive Date: 20210819
  Receipt Date: 20210819
  Transmission Date: 20211014
  Serious: Yes (Hospitalization)
  Sender: FDA-Public Use
  Company Number: CA-PFIZER INC-202101041274

PATIENT
  Age: 31 Year
  Sex: Female

DRUGS (10)
  1. HUMIRA [Suspect]
     Active Substance: ADALIMUMAB
     Dosage: 80 MG, WEEKLY
     Route: 058
  2. HUMIRA [Suspect]
     Active Substance: ADALIMUMAB
     Route: 058
  3. METHYLPREDNISOLONE SODIUM SUCCINATE. [Concomitant]
     Active Substance: METHYLPREDNISOLONE SODIUM SUCCINATE
     Dosage: 30 MG, 2X/DAY
     Route: 042
  4. STELARA [Suspect]
     Active Substance: USTEKINUMAB
     Route: 065
  5. METHOTREXATE SODIUM. [Suspect]
     Active Substance: METHOTREXATE SODIUM
     Route: 065
  6. INFLIXIMAB [Suspect]
     Active Substance: INFLIXIMAB
     Indication: COLITIS ULCERATIVE
     Dosage: 400 MG, 1 EVERY 4 WEEKS
     Route: 041
  7. AZITHROMYCIN DIHYDRATE. [Suspect]
     Active Substance: AZITHROMYCIN DIHYDRATE
     Route: 065
  8. XELJANZ [Suspect]
     Active Substance: TOFACITINIB CITRATE
     Indication: COLITIS ULCERATIVE
     Dosage: 10 MG, 2X/DAY
     Route: 048
  9. PREDNISONE. [Concomitant]
     Active Substance: PREDNISONE
     Dosage: 40 MG
  10. AZACITIDINE. [Concomitant]
     Active Substance: AZACITIDINE

REACTIONS (12)
  - Therapeutic product effect decreased [Unknown]
  - Local reaction [Unknown]
  - Colitis [Unknown]
  - Drug ineffective [Unknown]
  - Drug intolerance [Unknown]
  - Intestinal ulcer [Unknown]
  - Ulcer [Unknown]
  - Depression [Unknown]
  - Colitis ulcerative [Unknown]
  - Drug level decreased [Unknown]
  - Frequent bowel movements [Unknown]
  - Arthritis [Unknown]
